FAERS Safety Report 15594539 (Version 2)
Quarter: 2019Q3

REPORT INFORMATION
  Report Type: Other
  Country: FR (occurrence: FR)
  Receive Date: 20181106
  Receipt Date: 20190729
  Transmission Date: 20191004
  Serious: Yes (Hospitalization, Other)
  Sender: FDA-Public Use
  Company Number: FR-SEATTLE GENETICS-2018SGN02834

PATIENT
  Age: 68 Year
  Sex: Male
  Weight: 98 kg

DRUGS (15)
  1. PARACETAMOL [Suspect]
     Active Substance: ACETAMINOPHEN
     Indication: PREMEDICATION
     Dosage: 1 GRAM, QD
     Route: 042
     Dates: start: 20180820, end: 20180821
  2. METFORMINE [Concomitant]
     Active Substance: METFORMIN HYDROCHLORIDE
     Dosage: UNK
     Route: 065
  3. PROCORALAN [Concomitant]
     Active Substance: IVABRADINE
     Dosage: UNK
     Route: 065
  4. HUMALOG [Concomitant]
     Active Substance: INSULIN LISPRO
     Dosage: UNK
     Route: 065
  5. TOUJEO [Concomitant]
     Active Substance: INSULIN GLARGINE
     Dosage: UNK
     Route: 065
  6. ALLOPURINOL. [Concomitant]
     Active Substance: ALLOPURINOL
     Dosage: UNK
     Route: 065
  7. ADCETRIS [Suspect]
     Active Substance: BRENTUXIMAB VEDOTIN
     Indication: HODGKIN^S DISEASE
     Dosage: 180 MILLIGRAM, QD
     Route: 042
     Dates: start: 20180820, end: 20180821
  8. POLARAMINE [Suspect]
     Active Substance: DEXCHLORPHENIRAMINE MALEATE
     Indication: PREMEDICATION
     Dosage: UNK UNK, QD
     Route: 042
     Dates: start: 20180820, end: 20180821
  9. ZELITREX [Concomitant]
     Active Substance: VALACYCLOVIR HYDROCHLORIDE
     Dosage: UNK
     Route: 065
  10. KARDEGIC [Concomitant]
     Active Substance: ASPIRIN DL-LYSINE
     Dosage: UNK
     Route: 065
  11. BENDAMUSTINE HYDROCHLORIDE. [Suspect]
     Active Substance: BENDAMUSTINE HYDROCHLORIDE
     Indication: HODGKIN^S DISEASE
     Dosage: 260 MG, UNK
     Route: 042
     Dates: start: 20180820, end: 20180821
  12. ALLOPURINOL. [Concomitant]
     Active Substance: ALLOPURINOL
     Dosage: UNK
  13. SOLU-MEDROL [Suspect]
     Active Substance: METHYLPREDNISOLONE SODIUM SUCCINATE
     Indication: PREMEDICATION
     Dosage: 80 MG, UNK
     Route: 042
     Dates: start: 20180820, end: 20180821
  14. PLAVIX [Concomitant]
     Active Substance: CLOPIDOGREL BISULFATE
     Dosage: UNK
     Route: 065
  15. BACTRIM [Concomitant]
     Active Substance: SULFAMETHOXAZOLE\TRIMETHOPRIM
     Dosage: UNK
     Route: 065

REACTIONS (3)
  - Hypotension [Recovered/Resolved]
  - Acute coronary syndrome [Recovered/Resolved]
  - Acute kidney injury [Recovered/Resolved]

NARRATIVE: CASE EVENT DATE: 20180821
